FAERS Safety Report 16328135 (Version 1)
Quarter: 2019Q2

REPORT INFORMATION
  Report Type: Spontaneous
  Country: FR (occurrence: FR)
  Receive Date: 20190518
  Receipt Date: 20190518
  Transmission Date: 20190711
  Serious: Yes (Hospitalization, Other)
  Sender: FDA-Public Use
  Company Number: FR-AUROBINDO-AUR-APL-2019-027242

PATIENT

DRUGS (3)
  1. ATACAND [Suspect]
     Active Substance: CANDESARTAN CILEXETIL
     Indication: HYPERTENSION
     Dosage: 2 UNK, ONCE A DAY(1/2 TABLET), (1/4 TABLET )
     Route: 048
  2. LOSARTAN. [Suspect]
     Active Substance: LOSARTAN
     Indication: PRODUCT USED FOR UNKNOWN INDICATION
     Dosage: UNK
     Route: 065
  3. MAVIRET [Suspect]
     Active Substance: GLECAPREVIR\PIBRENTASVIR
     Indication: CHRONIC HEPATITIS C
     Dosage: 9 DOSAGE FORM, ONCE A DAY (100/40)
     Route: 048
     Dates: start: 20190314

REACTIONS (6)
  - Muscular weakness [Recovered/Resolved]
  - Cerebellar syndrome [Unknown]
  - Vertigo [Recovered/Resolved]
  - Syncope [Recovered/Resolved]
  - Potentiating drug interaction [Unknown]
  - Diarrhoea [Unknown]
